FAERS Safety Report 8647401 (Version 3)
Quarter: 2013Q3

REPORT INFORMATION
  Report Type: Report from Study
  Country: JP (occurrence: JP)
  Receive Date: 20120703
  Receipt Date: 20130701
  Transmission Date: 20140515
  Serious: Yes (Hospitalization)
  Sender: FDA-Public Use
  Company Number: JP-ELI_LILLY_AND_COMPANY-JP201206007206

PATIENT
  Age: 75 Year
  Sex: Female

DRUGS (1)
  1. TERIPARATIDE [Suspect]
     Route: 058

REACTIONS (4)
  - Spinal fracture [Unknown]
  - Injection site bruising [Unknown]
  - Fatigue [Unknown]
  - Tinnitus [Not Recovered/Not Resolved]
